FAERS Safety Report 10693159 (Version 2)
Quarter: 2015Q1

REPORT INFORMATION
  Report Type: Spontaneous
  Country: US (occurrence: US)
  Receive Date: 20150106
  Receipt Date: 20150206
  Transmission Date: 20150720
  Serious: No
  Sender: FDA-Public Use
  Company Number: US-AMGEN-USASP2014102342

PATIENT
  Age: 43 Year
  Sex: Male

DRUGS (1)
  1. ENBREL [Suspect]
     Active Substance: ETANERCEPT
     Indication: PSORIASIS
     Dosage: 50 MG, 2 TIMES/WK
     Route: 058
     Dates: start: 20120614, end: 20140511

REACTIONS (6)
  - Lacrimation increased [Recovered/Resolved]
  - Nasal congestion [Recovered/Resolved]
  - Sinusitis [Recovered/Resolved]
  - Cough [Recovered/Resolved]
  - Nasopharyngitis [Recovered/Resolved]
  - Rhinorrhoea [Recovered/Resolved]

NARRATIVE: CASE EVENT DATE: 201411
